FAERS Safety Report 14393660 (Version 1)
Quarter: 2018Q1

REPORT INFORMATION
  Report Type: Report from Study
  Country: US (occurrence: US)
  Receive Date: 20180116
  Receipt Date: 20180116
  Transmission Date: 20180509
  Serious: Yes (Other)
  Sender: FDA-Public Use
  Company Number: US-UCBSA-2018001662

PATIENT
  Sex: Female

DRUGS (2)
  1. CANNABIDIOL [Concomitant]
     Active Substance: CANNABIDIOL
     Indication: SEIZURE
     Dosage: UNK
  2. LEVETIRACETAM. [Suspect]
     Active Substance: LEVETIRACETAM
     Indication: SEIZURE
     Dosage: UNK

REACTIONS (4)
  - Focal dyscognitive seizures [Unknown]
  - Abortion spontaneous [Unknown]
  - Generalised tonic-clonic seizure [Unknown]
  - Pregnancy [Unknown]
